FAERS Safety Report 9523664 (Version 2)
Quarter: 2013Q3

REPORT INFORMATION
  Report Type: Spontaneous
  Country: GR (occurrence: GR)
  Receive Date: 20130913
  Receipt Date: 20130919
  Transmission Date: 20140515
  Serious: No
  Sender: FDA-Public Use
  Company Number: PHHY2013GR101166

PATIENT
  Age: 42 Year
  Sex: Female

DRUGS (1)
  1. DESFERAL INF. [Suspect]
     Dosage: UNK

REACTIONS (2)
  - Blister [Unknown]
  - Urticaria [Recovered/Resolved]
